FAERS Safety Report 5389417-9 (Version None)
Quarter: 2007Q3

REPORT INFORMATION
  Report Type: 
  Country: None (occurrence: None)
  Receive Date: 20070703
  Receipt Date: 20070321
  Transmission Date: 20080115
  Serious: No
  Sender: FDA-Public Use
  Company Number: 2007PV032112

PATIENT
  Age: 53 Year
  Sex: Male

DRUGS (3)
  1. SYMLIN [Suspect]
     Indication: TYPE 1 DIABETES MELLITUS
     Dosage: 15 MCG;TID;SC
     Route: 058
     Dates: start: 20070320
  2. LANTUS [Concomitant]
  3. NOVOLOG [Concomitant]

REACTIONS (2)
  - BLOOD GLUCOSE INCREASED [None]
  - INJECTION SITE PAIN [None]
